FAERS Safety Report 6516978-6 (Version None)
Quarter: 2009Q4

REPORT INFORMATION
  Report Type: 
  Country: None (occurrence: None)
  Receive Date: 20091223
  Receipt Date: 20091222
  Transmission Date: 20100525
  Serious: Yes (Other)
  Sender: FDA-Public Use
  Company Number: BR-WYE-H12751409

PATIENT
  Sex: Female
  Weight: 82 kg

DRUGS (4)
  1. PRISTIQ [Suspect]
     Indication: DEPRESSION
     Route: 048
     Dates: start: 20091001
  2. LOSARTAN POTASSIUM AND HYDROCHLOROTHIAZIDE [Concomitant]
     Dosage: 100MG/25MG, FREQUENCY NOT SPECIFIED
  3. ALPRAZOLAM [Concomitant]
     Indication: ANXIETY
     Dosage: UNKNOWN
  4. LOSARTAN POTASSIUM [Concomitant]
     Indication: HYPERTENSION
     Dosage: 100MG/25MG, FREQUENCY NOT SPECIFIED

REACTIONS (12)
  - BLOOD CHOLESTEROL INCREASED [None]
  - BLOOD CORTISOL ABNORMAL [None]
  - BLOOD GLUCOSE INCREASED [None]
  - BLOOD PRESSURE INADEQUATELY CONTROLLED [None]
  - BLOOD TRIGLYCERIDES INCREASED [None]
  - CONDITION AGGRAVATED [None]
  - GAMMA-GLUTAMYLTRANSFERASE INCREASED [None]
  - HIGH DENSITY LIPOPROTEIN ABNORMAL [None]
  - HYPERTENSION [None]
  - NERVOUSNESS [None]
  - SUICIDAL IDEATION [None]
  - VISION BLURRED [None]
